FAERS Safety Report 20631535 (Version 1)
Quarter: 2022Q1

REPORT INFORMATION
  Report Type: Spontaneous
  Country: US (occurrence: US)
  Receive Date: 20220324
  Receipt Date: 20220324
  Transmission Date: 20220424
  Serious: Yes (Other)
  Sender: FDA-Public Use
  Company Number: US-CELLTRION INC.-2022US003012

PATIENT

DRUGS (1)
  1. TRUXIMA [Suspect]
     Active Substance: RITUXIMAB-ABBS
     Indication: Warm type haemolytic anaemia
     Dosage: 780 MG ON DAY 1, DAY 15, DAY 22
     Dates: start: 20220112

REACTIONS (2)
  - Warm type haemolytic anaemia [Unknown]
  - Off label use [Unknown]
